FAERS Safety Report 15740385 (Version 1)
Quarter: 2018Q4

REPORT INFORMATION
  Report Type: Spontaneous
  Country: CH (occurrence: CH)
  Receive Date: 20181219
  Receipt Date: 20181219
  Transmission Date: 20190205
  Serious: Yes (Hospitalization, Other)
  Sender: FDA-Public Use
  Company Number: CH-MYLANLABS-2018M1092334

PATIENT

DRUGS (27)
  1. REMIFENTANIL FRESENIUS [Concomitant]
     Indication: PRODUCT USED FOR UNKNOWN INDICATION
     Dates: start: 20181012, end: 20181012
  2. TOREM [Suspect]
     Active Substance: TORSEMIDE
     Indication: PRODUCT USED FOR UNKNOWN INDICATION
     Dates: start: 20181018, end: 20181021
  3. DAFALGAN ODIS [Suspect]
     Active Substance: ACETAMINOPHEN
     Indication: POSTOPERATIVE ANALGESIA
     Dosage: ZUVOR PARACETAMOL (PERFALGAN ) 1G/100 ML I.V. AM 11.10.2018 UND 15.10.2018,
     Route: 048
     Dates: start: 20181015, end: 20181021
  4. MORPHINE HYDROCHLORIDE [Concomitant]
     Active Substance: MORPHINE HYDROCHLORIDE
     Dosage: AS NECESSARY
     Dates: start: 20181012, end: 20181012
  5. NORADRENALIN                       /00127502/ [Concomitant]
     Dosage: ROUTE:041
     Route: 041
     Dates: start: 20181012, end: 20181012
  6. PASPERTIN (METOCLOPRAMIDE HYDROCHLORIDE) [Suspect]
     Active Substance: METOCLOPRAMIDE HYDROCHLORIDE
     Indication: PROCEDURAL NAUSEA
     Dosage: ROUTE:041 ; ROUTE:041 ; ROUTE:048
     Route: 041
     Dates: start: 20181011, end: 20181012
  7. ADALAT [Suspect]
     Active Substance: NIFEDIPINE
     Indication: PRODUCT USED FOR UNKNOWN INDICATION
     Dosage: AS NECESSARY
     Route: 048
     Dates: start: 20181013, end: 20181018
  8. PASPERTIN (METOCLOPRAMIDE HYDROCHLORIDE) [Suspect]
     Active Substance: METOCLOPRAMIDE HYDROCHLORIDE
     Dosage: 30 GTT DROPS, ROUTE:041 ; ROUTE:041 ; ROUTE:048
     Route: 048
     Dates: start: 20181017, end: 20181019
  9. FRAGMIN [Suspect]
     Active Substance: DALTEPARIN SODIUM
     Indication: THROMBOSIS PROPHYLAXIS
     Dosage: ZUVOR HEPARIN 25000 IE/DAY VOM 12.- 14.10.2018
     Route: 058
     Dates: start: 20181014, end: 20181020
  10. PHENYLEPHRIN SINTETICA [Concomitant]
     Dosage: AS NECESSARY
     Dates: start: 20181012, end: 20181012
  11. PROPOFOL MCT FRESENIUS [Concomitant]
     Dosage: ROUTE:041
     Route: 041
     Dates: start: 20181012, end: 20181012
  12. CEFUROXIM FRESENIUS [Suspect]
     Active Substance: CEFUROXIME
     Indication: ANTIBIOTIC PROPHYLAXIS
     Dosage: IN TOTAL
     Route: 041
     Dates: start: 20181012, end: 20181012
  13. TRIATEC                            /00885601/ [Suspect]
     Active Substance: RAMIPRIL
     Indication: PRODUCT USED FOR UNKNOWN INDICATION
     Dosage: 5 MILLIGRAM, QD
     Route: 048
     Dates: start: 201811, end: 20181114
  14. DAFALGAN ODIS [Suspect]
     Active Substance: ACETAMINOPHEN
     Dosage: AS NECESSARY, ROUTE:048 ; ROUTE:054
     Dates: start: 20181022
  15. METRONIDAZOLE VIFOR MEDICAL [Concomitant]
     Active Substance: METRONIDAZOLE
     Indication: ANTIBIOTIC PROPHYLAXIS
     Route: 041
     Dates: start: 20181012, end: 20181012
  16. MAGNESIUMSULFAT BICHSEL [Concomitant]
     Dosage: IN TOTAL
     Dates: start: 20181012, end: 20181012
  17. BUPIVACAIN SINTETICA [Concomitant]
     Dates: start: 20181012, end: 20181017
  18. NOVALGIN (METAMIZOLE SODIUM) [Suspect]
     Active Substance: METAMIZOLE SODIUM
     Dosage: 40 GTT DROPS
     Route: 048
     Dates: start: 20181014, end: 20181021
  19. ESMERON [Concomitant]
     Active Substance: ROCURONIUM BROMIDE
     Indication: INDUCTION AND MAINTENANCE OF ANAESTHESIA
     Dosage: IN TOTAL
     Dates: start: 20181012, end: 20181012
  20. ESMERON [Concomitant]
     Active Substance: ROCURONIUM BROMIDE
     Dosage: IN TOTAL
     Dates: start: 20181012, end: 20181012
  21. PASPERTIN (METOCLOPRAMIDE HYDROCHLORIDE) [Suspect]
     Active Substance: METOCLOPRAMIDE HYDROCHLORIDE
     Dosage: 10 MILLIGRAM, ROUTE:041 ; ROUTE:041 ; ROUTE:048
     Route: 041
     Dates: start: 20181014, end: 20181016
  22. PANTOZOL [Suspect]
     Active Substance: PANTOPRAZOLE SODIUM
     Indication: PRODUCT USED FOR UNKNOWN INDICATION
     Route: 048
     Dates: start: 20181015, end: 20181115
  23. DAFALGAN ODIS [Suspect]
     Active Substance: ACETAMINOPHEN
     Dosage: 1 DOSAGE FORM
     Route: 054
     Dates: start: 20181106, end: 20181107
  24. NOVALGIN (METAMIZOLE SODIUM) [Suspect]
     Active Substance: METAMIZOLE SODIUM
     Indication: POSTOPERATIVE ANALGESIA
     Dosage: 1000 MILLIGRAM
     Route: 041
     Dates: start: 20181012, end: 20181014
  25. NOVALGIN (METAMIZOLE SODIUM) [Suspect]
     Active Substance: METAMIZOLE SODIUM
     Dosage: AS NECESSARY, ROUTE:041 ; ROUTE:048
     Dates: start: 20181021
  26. NITRODERM [Suspect]
     Active Substance: NITROGLYCERIN
     Indication: PRODUCT USED FOR UNKNOWN INDICATION
     Route: 062
     Dates: start: 20181016, end: 20181021
  27. FENTANYL SINTETICA [Concomitant]
     Active Substance: FENTANYL CITRATE
     Dosage: ROUTE:008
     Route: 008
     Dates: start: 20181012, end: 20181017

REACTIONS (2)
  - Prescribed overdose [Recovered/Resolved]
  - Drug-induced liver injury [Not Recovered/Not Resolved]

NARRATIVE: CASE EVENT DATE: 20181015
